FAERS Safety Report 18807277 (Version 2)
Quarter: 2021Q1

REPORT INFORMATION
  Report Type: Spontaneous
  Country: US (occurrence: US)
  Receive Date: 20210129
  Receipt Date: 20210322
  Transmission Date: 20210419
  Serious: No
  Sender: FDA-Public Use
  Company Number: US-BIOVITRUM-2021US0794

PATIENT
  Sex: Male
  Weight: 10.2 kg

DRUGS (8)
  1. SYNAGIS [Suspect]
     Active Substance: PALIVIZUMAB
     Indication: STEROID THERAPY
  2. SYNAGIS [Suspect]
     Active Substance: PALIVIZUMAB
     Indication: BRONCHOPULMONARY DYSPLASIA
     Route: 030
     Dates: start: 20190115
  3. PREDNISOLONE?BROMFENAC [Concomitant]
  4. SYNAGIS [Suspect]
     Active Substance: PALIVIZUMAB
     Indication: DEPENDENCE ON OXYGEN THERAPY
  5. EPINEPHRINE HCL [Concomitant]
     Active Substance: EPINEPHRINE
  6. SYNAGIS [Suspect]
     Active Substance: PALIVIZUMAB
     Indication: PREMATURE BABY
  7. PREDNISOLONE?BROMFENAC [Concomitant]
  8. POLY?VI?SOL WITH IRON [Concomitant]
     Active Substance: IRON\VITAMINS

REACTIONS (1)
  - Weight decreased [Not Recovered/Not Resolved]
